FAERS Safety Report 24225102 (Version 1)
Quarter: 2024Q3

REPORT INFORMATION
  Report Type: Spontaneous
  Country: GB (occurrence: GB)
  Receive Date: 20240820
  Receipt Date: 20240820
  Transmission Date: 20241017
  Serious: Yes (Hospitalization, Other)
  Sender: NOVO NORDISK
  Company Number: None

PATIENT
  Age: 56 Year
  Sex: Male
  Weight: 145 kg

DRUGS (3)
  1. WEGOVY [Suspect]
     Active Substance: SEMAGLUTIDE
     Indication: Obesity
     Dosage: 1MG
     Dates: start: 20240629, end: 20240728
  2. RIVAROXABAN [Concomitant]
     Active Substance: RIVAROXABAN
     Indication: Antiphospholipid syndrome
     Dosage: UNK
     Dates: start: 20141002
  3. ATORVASTATIN [Concomitant]
     Active Substance: ATORVASTATIN
     Indication: Blood cholesterol abnormal
     Dosage: UNK
     Dates: start: 20201103

REACTIONS (5)
  - Abdominal distension [Recovered/Resolved with Sequelae]
  - Blood pressure decreased [Unknown]
  - Abdominal pain upper [Unknown]
  - Dyspepsia [Unknown]
  - Presyncope [Unknown]

NARRATIVE: CASE EVENT DATE: 20240801
